FAERS Safety Report 16897653 (Version 1)
Quarter: 2019Q4

REPORT INFORMATION
  Report Type: Spontaneous
  Country: GB (occurrence: GB)
  Receive Date: 20191009
  Receipt Date: 20191009
  Transmission Date: 20200122
  Serious: Yes (Other)
  Sender: FDA-Public Use
  Company Number: GB-AUROBINDO-AUR-APL-2019-064747

PATIENT
  Age: 58 Year
  Sex: Male
  Weight: 90 kg

DRUGS (1)
  1. TAMSULOSIN [Suspect]
     Active Substance: TAMSULOSIN
     Indication: PROSTATOMEGALY
     Dosage: 400 MICROGRAM
     Route: 048
     Dates: start: 20181108, end: 20181109

REACTIONS (1)
  - Erectile dysfunction [Recovered/Resolved]

NARRATIVE: CASE EVENT DATE: 20181109
